FAERS Safety Report 11021922 (Version 3)
Quarter: 2015Q2

REPORT INFORMATION
  Report Type: Report from Study
  Country: KR (occurrence: KR)
  Receive Date: 20150413
  Receipt Date: 20150505
  Transmission Date: 20150821
  Serious: Yes (Hospitalization, Other)
  Sender: FDA-Public Use
  Company Number: KR-GILEAD-2015-0147890

PATIENT
  Age: 49 Year
  Sex: Male
  Weight: 75 kg

DRUGS (10)
  1. URSA [Concomitant]
     Dosage: UNK
     Dates: start: 20140308
  2. COQMIN [Concomitant]
     Dosage: UNK
     Dates: start: 20140324
  3. TELMINUVO [Concomitant]
     Dosage: UNK
     Dates: start: 20140317
  4. REFRESH PLUS [Concomitant]
     Active Substance: CARBOXYMETHYLCELLULOSE SODIUM
     Dosage: UNK
     Dates: start: 20131204
  5. TENOFOVIR DISOPROXIL FUMARATE [Suspect]
     Active Substance: TENOFOVIR DISOPROXIL FUMARATE
     Indication: PRODUCT USED FOR UNKNOWN INDICATION
     Dosage: 300 MG, UNK
     Route: 048
     Dates: start: 20140429
  6. RANITIDINE [Concomitant]
     Active Substance: RANITIDINE\RANITIDINE HYDROCHLORIDE
     Dosage: UNK
     Dates: start: 20140213
  7. GATIFLO [Concomitant]
     Active Substance: GATIFLOXACIN
     Dosage: UNK
     Dates: start: 20131227
  8. SOLONDO [Concomitant]
     Active Substance: PREDNISOLONE
     Dosage: UNK
     Dates: start: 20140414
  9. ACTOSMET [Concomitant]
     Dosage: UNK
     Dates: start: 20140324
  10. CIPOL-N [Concomitant]
     Dosage: UNK
     Dates: start: 20140214

REACTIONS (1)
  - Corneal degeneration [Recovered/Resolved]

NARRATIVE: CASE EVENT DATE: 20150112
